FAERS Safety Report 9645960 (Version 2)
Quarter: 2013Q4

REPORT INFORMATION
  Report Type: Spontaneous
  Country: TN (occurrence: TN)
  Receive Date: 20131025
  Receipt Date: 20131106
  Transmission Date: 20140711
  Serious: Yes (Death)
  Sender: FDA-Public Use
  Company Number: TN-JNJFOC-20131015445

PATIENT
  Age: 54 Year
  Sex: Male
  Weight: 53 kg

DRUGS (5)
  1. REMICADE [Suspect]
     Indication: PRODUCT USED FOR UNKNOWN INDICATION
     Route: 042
     Dates: start: 20130905, end: 20130905
  2. SOLU MEDROL [Suspect]
     Indication: COLITIS
     Route: 048
     Dates: start: 20131005
  3. AZATHIOPRINE [Suspect]
     Indication: COLITIS
     Route: 065
     Dates: start: 20131005
  4. CINCOR [Concomitant]
     Indication: ACUTE CORONARY SYNDROME
     Route: 065
     Dates: start: 201301
  5. KARDEGIC [Concomitant]
     Indication: ACUTE CORONARY SYNDROME
     Route: 065
     Dates: start: 201301

REACTIONS (1)
  - Bronchopulmonary aspergillosis [Fatal]
